FAERS Safety Report 8500833-6 (Version None)
Quarter: 2012Q3

REPORT INFORMATION
  Report Type: 
  Country: None (occurrence: None)
  Receive Date: 20120703
  Receipt Date: 20120703
  Transmission Date: 20120928
  Serious: No
  Sender: FDA-Public Use
  Company Number: None

PATIENT
  Age: 51 Year
  Sex: Male
  Weight: 89 kg

DRUGS (1)
  1. NIACIN [Suspect]
     Indication: DRUG THERAPY ENHANCEMENT
     Dosage: 25 MG UD PO
     Route: 048
     Dates: start: 20120305, end: 20120305

REACTIONS (4)
  - FLUSHING [None]
  - DYSPNOEA [None]
  - RASH MACULAR [None]
  - DIZZINESS [None]
